FAERS Safety Report 7096536-8 (Version None)
Quarter: 2010Q4

REPORT INFORMATION
  Report Type: 
  Country: None (occurrence: None)
  Receive Date: 20101111
  Receipt Date: 20101109
  Transmission Date: 20110411
  Serious: Yes (Hospitalization)
  Sender: FDA-Public Use
  Company Number: A0891405A

PATIENT
  Age: 60 Year
  Sex: Male

DRUGS (5)
  1. IMITREX [Suspect]
     Indication: MIGRAINE
     Dosage: 100MG AS REQUIRED
     Route: 048
  2. SUMATRIPTAN SUCCINATE [Suspect]
     Indication: MIGRAINE
     Dosage: 100MG AS REQUIRED
     Route: 048
  3. PREDNISONE [Suspect]
     Dates: start: 20100701
  4. SINGULAIR [Concomitant]
  5. AVODART [Concomitant]

REACTIONS (7)
  - ASTHMA [None]
  - DRUG INTERACTION [None]
  - FOCAL SEGMENTAL GLOMERULOSCLEROSIS [None]
  - MIGRAINE [None]
  - OEDEMA [None]
  - RENAL DISORDER [None]
  - RENAL FAILURE [None]
